FAERS Safety Report 10896133 (Version 1)
Quarter: 2015Q1

REPORT INFORMATION
  Report Type: Spontaneous
  Country: BR (occurrence: BR)
  Receive Date: 20150309
  Receipt Date: 20150309
  Transmission Date: 20150721
  Serious: Yes (Hospitalization)
  Sender: FDA-Public Use
  Company Number: BR-ROCHE-1547052

PATIENT
  Sex: Female
  Weight: 50 kg

DRUGS (5)
  1. PHENOBARBITAL. [Concomitant]
     Active Substance: PHENOBARBITAL
  2. PHENYTOIN. [Concomitant]
     Active Substance: PHENYTOIN
  3. CLONAZEPAM. [Suspect]
     Active Substance: CLONAZEPAM
     Indication: SEIZURE
     Route: 065
  4. CYCLOFEMINA [Concomitant]
  5. PROVERA [Concomitant]
     Active Substance: MEDROXYPROGESTERONE ACETATE
     Route: 065

REACTIONS (7)
  - Memory impairment [Not Recovered/Not Resolved]
  - Coma [Unknown]
  - Nausea [Unknown]
  - Hypersensitivity [Unknown]
  - Seizure [Not Recovered/Not Resolved]
  - Headache [Unknown]
  - Weight increased [Unknown]
